FAERS Safety Report 6300505-2 (Version None)
Quarter: 2009Q3

REPORT INFORMATION
  Report Type: 
  Country: None (occurrence: None)
  Receive Date: 20090806
  Receipt Date: 20090113
  Transmission Date: 20100115
  Serious: No
  Sender: FDA-Public Use
  Company Number: US-ABBOTT-09P-163-0497484-00

PATIENT
  Age: 25 Year
  Sex: Female

DRUGS (4)
  1. DEPAKOTE ER [Suspect]
     Indication: BIPOLAR DISORDER
     Route: 048
     Dates: start: 20080521, end: 20081212
  2. DEPAKOTE ER [Suspect]
     Route: 048
     Dates: start: 20081222
  3. LAMICTAL [Concomitant]
     Indication: BIPOLAR DISORDER
  4. WELLBUTRIN XL [Concomitant]
     Indication: DEPRESSION

REACTIONS (4)
  - DIPLOPIA [None]
  - DRUG INEFFECTIVE [None]
  - PAPILLOEDEMA [None]
  - VISION BLURRED [None]
